FAERS Safety Report 5673923-3 (Version None)
Quarter: 2008Q2

REPORT INFORMATION
  Report Type: 
  Country: None (occurrence: None)
  Receive Date: 20080228
  Receipt Date: 20071008
  Transmission Date: 20081010
  Serious: Yes (Other)
  Sender: FDA-Public Use
  Company Number: US200710002747

PATIENT
  Age: 42 Year
  Sex: Female

DRUGS (2)
  1. SYMBYAX [Suspect]
     Dosage: 1 D/F
  2. ATIVAN [Concomitant]

REACTIONS (1)
  - CONVULSION [None]
